FAERS Safety Report 8801647 (Version 1)
Quarter: 2012Q4

REPORT INFORMATION
  Report Type: 
  Country: IE (occurrence: IE)
  Receive Date: 20120921
  Receipt Date: 20120921
  Transmission Date: 20130627
  Serious: Yes (Death)
  Sender: FDA-Public Use
  Company Number: IE-ABBOTT-12P-229-0984057-00

PATIENT
  Age: 51 Year
  Sex: Female

DRUGS (4)
  1. CYCLOSPORINE [Suspect]
  2. CYCLOPHOSPHAMIDE [Suspect]
     Dosage: 9.7 GM
     Route: 042
  3. GLUCOCORTICOIDS [Suspect]
  4. MYCOPHENOLATE MOFETIL [Concomitant]

REACTIONS (1)
  - Progressive multifocal leukoencephalopathy [Fatal]
